FAERS Safety Report 7656106-7 (Version None)
Quarter: 2011Q3

REPORT INFORMATION
  Report Type: 
  Country: None (occurrence: None)
  Receive Date: 20110804
  Receipt Date: 20110729
  Transmission Date: 20111222
  Serious: Yes (Hospitalization)
  Sender: FDA-Public Use
  Company Number: JP-ROCHE-794278

PATIENT
  Sex: Female
  Weight: 10 kg

DRUGS (3)
  1. ROCEPHIN [Suspect]
     Indication: BRONCHITIS
     Route: 041
     Dates: start: 20110613, end: 20110613
  2. CLINDAMYCIN HCL [Suspect]
     Route: 041
     Dates: start: 20110613, end: 20110613
  3. MEIACT [Concomitant]
     Dosage: DOSE: MINUTE GRAIN, NOTE: DOSAGE IS UNCERTAIN.
     Route: 048
     Dates: start: 20110608, end: 20110611

REACTIONS (1)
  - ANAPHYLACTIC SHOCK [None]
